FAERS Safety Report 7222448-2 (Version None)
Quarter: 2011Q1

REPORT INFORMATION
  Report Type: 
  Country: None (occurrence: None)
  Receive Date: 20110112
  Receipt Date: 20101229
  Transmission Date: 20110831
  Serious: Yes (Death, Hospitalization)
  Sender: FDA-Public Use
  Company Number: US-ACTELION-A-US2010-42082

PATIENT

DRUGS (2)
  1. BOSENTAN TABLET UNKNOWN US MG [Suspect]
     Indication: PULMONARY ARTERIAL HYPERTENSION
     Dosage: UNK
     Route: 048
     Dates: start: 20080409
  2. CALCIUM CHANNEL BLOCKERS [Concomitant]

REACTIONS (7)
  - TRICUSPID VALVE INCOMPETENCE [None]
  - NAUSEA [None]
  - HYPERTENSION [None]
  - ATRIAL FIBRILLATION [None]
  - PULMONARY SARCOIDOSIS [None]
  - HYPERCAPNIA [None]
  - VOMITING [None]
